FAERS Safety Report 9518612 (Version 3)
Quarter: 2013Q4

REPORT INFORMATION
  Report Type: Spontaneous
  Country: HU (occurrence: HU)
  Receive Date: 20130912
  Receipt Date: 20131003
  Transmission Date: 20140711
  Serious: Yes (Hospitalization)
  Sender: FDA-Public Use
  Company Number: PHHY2013HU099719

PATIENT
  Age: 70 Year
  Sex: Male

DRUGS (13)
  1. EXJADE [Suspect]
     Indication: REFRACTORY CYTOPENIA WITH UNILINEAGE DYSPLASIA
     Dosage: 500 MG, TID
     Route: 048
     Dates: start: 20130624
  2. EXJADE [Suspect]
     Indication: MYELODYSPLASTIC SYNDROME
     Dosage: 500 MG, QD
     Route: 048
     Dates: start: 201307, end: 201308
  3. EXJADE [Suspect]
     Dosage: 1500 MG, QD
     Route: 048
     Dates: start: 201308, end: 201309
  4. LOKREN [Concomitant]
     Indication: HYPERTENSION
     Dosage: 20 MG, DAILY
     Route: 048
  5. HYDROCHLOROTHIAZIDE [Concomitant]
     Indication: HYPERTENSION
     Dosage: UNK UKN, BID
     Route: 048
  6. PERINDOPRIL [Concomitant]
     Indication: HYPERTENSION
     Dosage: BID
  7. PANTACID                           /00416501/ [Concomitant]
     Indication: PROPHYLAXIS
     Dosage: 40 MG, DAILY
     Route: 048
  8. CARDURA [Concomitant]
     Indication: HYPERTENSION
     Dosage: 4 MG, QD
     Route: 048
  9. MILURIT [Concomitant]
     Indication: PROPHYLAXIS
     Dosage: 300 MG, DAILY
     Route: 048
  10. SYNCUMAR [Concomitant]
     Indication: PROPHYLAXIS
     Dosage: 1 MG, DAILY
  11. ACE INHIBITORS [Concomitant]
     Dosage: UNK UKN, UNK
  12. THIAZIDE DIURETICS [Concomitant]
     Dosage: UNK UKN, UNK
  13. PANTOPRAZOL [Concomitant]
     Dosage: 40 MG, QD
     Route: 048

REACTIONS (3)
  - Jaundice [Recovering/Resolving]
  - Hepatic enzyme increased [Recovering/Resolving]
  - Cholelithiasis [Unknown]
